FAERS Safety Report 4349987-6 (Version None)
Quarter: 2004Q2

REPORT INFORMATION
  Report Type: 
  Country: None (occurrence: None)
  Receive Date: 20040428
  Receipt Date: 20040428
  Transmission Date: 20050107
  Serious: Yes (Congenital Anomaly)
  Sender: FDA-Public Use
  Company Number: None

PATIENT
  Sex: Female
  Weight: 53.978 kg

DRUGS (4)
  1. TOPAMAX [Suspect]
     Indication: EPILEPSY
     Dosage: 200 MG BID ORAL
     Route: 048
     Dates: start: 20030101, end: 20031231
  2. ACETAZOLAMIDE [Suspect]
     Indication: BENIGN INTRACRANIAL HYPERTENSION
     Dosage: 250 MG DAILY ORAL
     Route: 048
     Dates: start: 20030101, end: 20031231
  3. FOLATE [Concomitant]
  4. M.V.I. [Concomitant]

REACTIONS (2)
  - DRUG EXPOSURE DURING PREGNANCY [None]
  - PREGNANCY [None]
